FAERS Safety Report 5306371-6 (Version None)
Quarter: 2007Q2

REPORT INFORMATION
  Report Type: 
  Country: None (occurrence: None)
  Receive Date: 20070424
  Receipt Date: 20070413
  Transmission Date: 20071010
  Serious: Yes (Hospitalization, Other)
  Sender: FDA-Public Use
  Company Number: NL-BAYER-200711819GDS

PATIENT
  Age: 54 Year
  Sex: Female
  Weight: 54 kg

DRUGS (8)
  1. SORAFENIB [Suspect]
     Indication: NON-SMALL CELL LUNG CANCER
     Dosage: TOTAL DAILY DOSE: 800 MG
     Route: 048
     Dates: start: 20070317
  2. CARBOPLATIN [Suspect]
     Indication: NON-SMALL CELL LUNG CANCER
     Route: 042
     Dates: start: 20070316, end: 20070316
  3. PACLITAXEL [Suspect]
     Indication: NON-SMALL CELL LUNG CANCER
     Route: 042
     Dates: start: 20070316, end: 20070316
  4. MORPHINE [Concomitant]
     Indication: PAIN
     Dosage: AS USED: 20 MG
     Route: 048
     Dates: start: 20061001
  5. PANTOPRAZOLE [Concomitant]
     Indication: PROPHYLAXIS
     Route: 048
     Dates: start: 20070223
  6. MALCOLON [Concomitant]
     Indication: CONSTIPATION
     Route: 048
     Dates: start: 20061001
  7. TRYPTIZOL [Concomitant]
     Indication: SLEEP DISORDER
     Route: 048
     Dates: start: 20070323
  8. TEMAZEPAM [Concomitant]
     Indication: SLEEP DISORDER
     Route: 048
     Dates: start: 20061001

REACTIONS (4)
  - DYSPNOEA [None]
  - MALAISE [None]
  - NEUTROPENIA [None]
  - WEIGHT DECREASED [None]
